FAERS Safety Report 18488504 (Version 1)
Quarter: 2020Q4

REPORT INFORMATION
  Report Type: Spontaneous
  Country: CA (occurrence: CA)
  Receive Date: 20201111
  Receipt Date: 20201111
  Transmission Date: 20210114
  Serious: Yes (Disabling)
  Sender: FDA-Public Use
  Company Number: CA-HORIZON-2020HZN00918

PATIENT
  Age: 60 Year
  Sex: Female

DRUGS (2)
  1. VIMOVO [Suspect]
     Active Substance: ESOMEPRAZOLE MAGNESIUM\NAPROXEN
     Indication: PAIN
     Dosage: 2 SEPARATED DOSES
     Route: 048
  2. CYCLOBENAZARPINE [Concomitant]
     Route: 065

REACTIONS (1)
  - Deafness [Recovered/Resolved]
